FAERS Safety Report 5353454-0 (Version None)
Quarter: 2007Q2

REPORT INFORMATION
  Report Type: 
  Country: None (occurrence: None)
  Receive Date: 20070612
  Receipt Date: 20070601
  Transmission Date: 20071010
  Serious: Yes (Other)
  Sender: FDA-Public Use
  Company Number: PHBS2007FI09484

PATIENT
  Age: 35 Year
  Sex: Female

DRUGS (5)
  1. CLOZAPINE [Suspect]
     Indication: BIPOLAR DISORDER
     Dosage: 350 MG/D
     Route: 048
     Dates: start: 20070215, end: 20070519
  2. DEPRAKINE [Concomitant]
     Dosage: 1000 MG/D
  3. DIAPAM [Concomitant]
     Dosage: 10 MG/D
  4. CYMBALTA [Concomitant]
     Dosage: 60 MG/D
  5. THYROXIN [Concomitant]
     Dosage: 25 UG/D

REACTIONS (2)
  - ELECTROCARDIOGRAM QT PROLONGED [None]
  - TACHYCARDIA [None]
